FAERS Safety Report 5200780-1 (Version None)
Quarter: 2006Q4

REPORT INFORMATION
  Report Type: 
  Country: None (occurrence: None)
  Receive Date: 20061016
  Receipt Date: 20060624
  Transmission Date: 20070319
  Serious: No
  Sender: FDA-Public Use
  Company Number: 2006SP002533

PATIENT
  Age: 36 Year
  Sex: Male
  Weight: 61.2356 kg

DRUGS (8)
  1. LUNESTA [Suspect]
     Indication: INSOMNIA
     Dosage: 3 MG, HS, ORAL
     Route: 048
     Dates: start: 20060622
  2. LITHOBID [Concomitant]
  3. SEROQUEL [Concomitant]
  4. SYNTHROID [Concomitant]
  5. PANTOPRAZOLE SODIUM [Concomitant]
  6. SUMATRIPTAN SUCCINATE [Concomitant]
  7. VICODIN [Concomitant]
  8. PERCOCET [Concomitant]

REACTIONS (1)
  - INSOMNIA [None]
